FAERS Safety Report 5042316-4 (Version None)
Quarter: 2006Q2

REPORT INFORMATION
  Report Type: 
  Country: None (occurrence: None)
  Receive Date: 20060601
  Receipt Date: 20060330
  Transmission Date: 20061013
  Serious: No
  Sender: FDA-Public Use
  Company Number: 2006PV011255

PATIENT
  Age: 53 Year
  Sex: Female
  Weight: 102.5129 kg

DRUGS (14)
  1. BYETTA [Suspect]
     Indication: DIABETES MELLITUS NON-INSULIN-DEPENDENT
     Dosage: SEE IMAGE, SC
     Route: 058
     Dates: start: 20060205, end: 20060301
  2. BYETTA [Suspect]
     Indication: DIABETES MELLITUS NON-INSULIN-DEPENDENT
     Dosage: SEE IMAGE, SC
     Route: 058
     Dates: start: 20060305, end: 20060306
  3. BYETTA [Suspect]
     Indication: DIABETES MELLITUS NON-INSULIN-DEPENDENT
     Dosage: SEE IMAGE, SC
     Route: 058
     Dates: start: 20060329
  4. LIPITOR [Suspect]
     Indication: DRUG USE FOR UNKNOWN INDICATION
     Dosage: 20 MG; QD; PO
     Route: 048
     Dates: start: 19960101, end: 20060228
  5. POTASSIUM [Concomitant]
  6. COQ10 [Concomitant]
  7. CALCIUM/MAGNESIUM [Concomitant]
  8. METFORMIN [Concomitant]
  9. AVANDIA [Concomitant]
  10. NAPROXEN [Concomitant]
  11. HYDROCHLOROTHIAZIDE [Concomitant]
  12. NORVASC [Concomitant]
  13. SYNTHROID [Concomitant]
  14. ASPIRIN [Concomitant]

REACTIONS (7)
  - ASTHENIA [None]
  - HEPATIC ENZYME INCREASED [None]
  - JOINT DISLOCATION [None]
  - MUSCULAR WEAKNESS [None]
  - MYALGIA [None]
  - PAIN IN EXTREMITY [None]
  - PROCEDURAL PAIN [None]
